FAERS Safety Report 12201163 (Version 1)
Quarter: 2016Q1

REPORT INFORMATION
  Report Type: Spontaneous
  Country: US (occurrence: US)
  Receive Date: 20160322
  Receipt Date: 20160322
  Transmission Date: 20160526
  Serious: No
  Sender: FDA-Public Use
  Company Number: US-SA-2015SA056282

PATIENT
  Age: 37 Year
  Sex: Male

DRUGS (1)
  1. NASACORT ALLERGY 24HR [Suspect]
     Active Substance: TRIAMCINOLONE ACETONIDE
     Indication: MULTIPLE ALLERGIES
     Dosage: PRODUCT START DATE: 3 WEEKS AGO?DOSAGE:1-2 SPRAY;QD
     Route: 045
     Dates: end: 20150420

REACTIONS (1)
  - Drug ineffective [Unknown]
